FAERS Safety Report 18459010 (Version 2)
Quarter: 2020Q4

REPORT INFORMATION
  Report Type: Spontaneous
  Country: BG (occurrence: BG)
  Receive Date: 20201103
  Receipt Date: 20201108
  Transmission Date: 20210114
  Serious: Yes (Death, Life-Threatening, Hospitalization, Other)
  Sender: FDA-Public Use
  Company Number: NVSC2020BG285441

PATIENT
  Age: 61 Year
  Sex: Female

DRUGS (3)
  1. METHOTREXATE. [Suspect]
     Active Substance: METHOTREXATE
     Dosage: 7.5 MG, QW
     Route: 048
  2. METHOTREXATE. [Suspect]
     Active Substance: METHOTREXATE
     Dosage: 15 MG, QD WEEKLY PRESCRIBED 15 MG/DAILY FOR 6 DAYS TOTAL INGESTED DOSE - 90 M
     Route: 048
  3. METHOTREXATE. [Suspect]
     Active Substance: METHOTREXATE
     Indication: PSORIASIS
     Dosage: 20 MG, QW (8 X 2.5 MG TABLETS)
     Route: 048
     Dates: start: 2019

REACTIONS (5)
  - Overdose [Fatal]
  - Pancytopenia [Fatal]
  - Oral mucosa erosion [Fatal]
  - Multiple organ dysfunction syndrome [Fatal]
  - Skin erosion [Fatal]
